FAERS Safety Report 18627419 (Version 1)
Quarter: 2020Q4

REPORT INFORMATION
  Report Type: Spontaneous
  Country: CA (occurrence: CA)
  Receive Date: 20201217
  Receipt Date: 20201217
  Transmission Date: 20210114
  Serious: Yes (Other)
  Sender: FDA-Public Use
  Company Number: CA-BAYER-2020-272498

PATIENT
  Sex: Female

DRUGS (12)
  1. IMOVAN [Suspect]
     Active Substance: ZOPICLONE
  2. MORPHINE SULFATE. [Suspect]
     Active Substance: MORPHINE SULFATE
  3. FLAGYL [Suspect]
     Active Substance: METRONIDAZOLE\METRONIDAZOLE HYDROCHLORIDE
  4. HUMIRA [Suspect]
     Active Substance: ADALIMUMAB
  5. VERSED [Suspect]
     Active Substance: MIDAZOLAM HYDROCHLORIDE
     Route: 042
  6. DIFLUCAN [Suspect]
     Active Substance: FLUCONAZOLE
  7. CIPRO [Suspect]
     Active Substance: CIPROFLOXACIN HYDROCHLORIDE
  8. REMICADE [Suspect]
     Active Substance: INFLIXIMAB
  9. PREDNISONE. [Suspect]
     Active Substance: PREDNISONE
  10. METHYLPREDNISOLONE SODIUM SUCCINATE. [Suspect]
     Active Substance: METHYLPREDNISOLONE SODIUM SUCCINATE
     Route: 042
  11. FENTANYL. [Suspect]
     Active Substance: FENTANYL
     Route: 042
  12. BACTRIM DS [Suspect]
     Active Substance: SULFAMETHOXAZOLE\TRIMETHOPRIM

REACTIONS (14)
  - Flatulence [None]
  - Anaemia [None]
  - Abnormal faeces [None]
  - Drug hypersensitivity [None]
  - Haematochezia [None]
  - Colitis [None]
  - Colitis ulcerative [None]
  - Diarrhoea [None]
  - Drug intolerance [None]
  - Antibody test abnormal [None]
  - Female genital tract fistula [None]
  - Abdominal pain [None]
  - Erythema [None]
  - Oral candidiasis [None]
